FAERS Safety Report 7973329-8 (Version None)
Quarter: 2011Q4

REPORT INFORMATION
  Report Type: 
  Country: None (occurrence: None)
  Receive Date: 20111209
  Receipt Date: 20111124
  Transmission Date: 20120403
  Serious: Yes (Hospitalization)
  Sender: FDA-Public Use
  Company Number: GER/GER/11/0022160

PATIENT
  Age: 69 Year
  Sex: Female

DRUGS (9)
  1. LITHIUM CARBONATE [Suspect]
     Indication: PRODUCT USED FOR UNKNOWN INDICATION
     Dosage: 900 MG, 1 D, ORAL
     Route: 048
     Dates: end: 20110401
  2. PANTOZOL (PANTOPRAZOLE SODIUM SESQUIHYDRATE) [Concomitant]
  3. BELOK ZOK (METOPROLOL SUCCINATE) [Concomitant]
  4. ASPIRIN [Suspect]
     Indication: PRODUCT USED FOR UNKNOWN INDICATION
     Dosage: 100 MG, 1 D, ORAL
     Route: 048
  5. DIOVAN [Concomitant]
  6. AMLODIPINE [Suspect]
     Indication: PRODUCT USED FOR UNKNOWN INDICATION
     Dosage: 10 MG, 1 D, ORAL
     Route: 048
  7. JODID (POTASSIUM OXIDE) [Concomitant]
  8. HYDROCHLOROTHIAZIDE [Suspect]
     Indication: PRODUCT USED FOR UNKNOWN INDICATION
     Dosage: 25 MG, 1 D, ORAL
     Route: 048
     Dates: end: 20110328
  9. LEVOTHYROXINE SODIUM [Concomitant]

REACTIONS (10)
  - DISORIENTATION [None]
  - COUGH [None]
  - TREMOR [None]
  - DEPRESSED LEVEL OF CONSCIOUSNESS [None]
  - GENERAL PHYSICAL HEALTH DETERIORATION [None]
  - HEADACHE [None]
  - CLONUS [None]
  - INFECTION [None]
  - TOXICITY TO VARIOUS AGENTS [None]
  - DEPRESSION [None]
